FAERS Safety Report 15234496 (Version 1)
Quarter: 2018Q3

REPORT INFORMATION
  Report Type: Spontaneous
  Country: FI (occurrence: FI)
  Receive Date: 20180803
  Receipt Date: 20180803
  Transmission Date: 20181010
  Serious: Yes (Other)
  Sender: FDA-Public Use
  Company Number: FI-CONCORDIA PHARMACEUTICALS INC.-E2B_00015259

PATIENT
  Age: 71 Year
  Sex: Female

DRUGS (1)
  1. PREDNISOLONE. [Suspect]
     Active Substance: PREDNISOLONE

REACTIONS (1)
  - White blood cell count increased [Unknown]
